FAERS Safety Report 4422574-7 (Version None)
Quarter: 2004Q3

REPORT INFORMATION
  Report Type: 
  Country: None (occurrence: None)
  Receive Date: 20040713
  Receipt Date: 20040213
  Transmission Date: 20050211
  Serious: No
  Sender: FDA-Public Use
  Company Number: PHEH2004US01975

PATIENT
  Age: 37 Year
  Sex: Female

DRUGS (1)
  1. ELIDEL [Suspect]
     Indication: ECZEMA
     Dosage: TOPICAL
     Route: 061
     Dates: start: 20040212, end: 20040213

REACTIONS (3)
  - APPLICATION SITE BURNING [None]
  - APPLICATION SITE DRYNESS [None]
  - APPLICATION SITE IRRITATION [None]
